FAERS Safety Report 14168925 (Version 1)
Quarter: 2017Q4

REPORT INFORMATION
  Report Type: Spontaneous
  Country: CN (occurrence: CN)
  Receive Date: 20171107
  Receipt Date: 20171107
  Transmission Date: 20180321
  Serious: Yes (Other)
  Sender: FDA-Public Use
  Company Number: CN-MYLANLABS-2017M1069303

PATIENT
  Age: 40 Year
  Sex: Female

DRUGS (7)
  1. IFOSFAMIDE. [Suspect]
     Active Substance: IFOSFAMIDE
     Indication: T-CELL LYMPHOMA STAGE I
     Dosage: SMILE REGIMEN
     Route: 065
  2. ETOPOSIDE. [Suspect]
     Active Substance: ETOPOSIDE
     Indication: T-CELL LYMPHOMA STAGE I
     Dosage: SMILE REGIMEN
     Route: 065
  3. ASPARAGINASE [Suspect]
     Active Substance: ASPARAGINASE
     Indication: T-CELL LYMPHOMA STAGE I
     Dosage: SMILE REGIMEN
     Route: 065
  4. DEXAMETHASONE. [Suspect]
     Active Substance: DEXAMETHASONE
     Indication: T-CELL LYMPHOMA STAGE I
     Dosage: SMILE REGIMEN
     Route: 065
  5. FLUDARABINE [Suspect]
     Active Substance: FLUDARABINE PHOSPHATE
     Indication: T-CELL LYMPHOMA STAGE I
     Dosage: 25 MG/M2 ON DAYS 1-5
     Route: 065
  6. METHOTREXATE. [Suspect]
     Active Substance: METHOTREXATE
     Indication: T-CELL LYMPHOMA STAGE I
     Dosage: SMILE REGIMEN
     Route: 065
  7. BORTEZOMIB [Suspect]
     Active Substance: BORTEZOMIB
     Indication: T-CELL LYMPHOMA STAGE I
     Dosage: 1.3 MG/M2 ON DAYS 1, 4, 8 AND 11
     Route: 065

REACTIONS (3)
  - Infection [Unknown]
  - Neutropenia [Unknown]
  - Toxicity to various agents [Unknown]
